FAERS Safety Report 17720051 (Version 1)
Quarter: 2020Q2

REPORT INFORMATION
  Report Type: Spontaneous
  Country: BR (occurrence: BR)
  Receive Date: 20200428
  Receipt Date: 20200428
  Transmission Date: 20200714
  Serious: Yes (Other)
  Sender: FDA-Public Use
  Company Number: BR-BAYER-2020-069279

PATIENT
  Sex: Female

DRUGS (1)
  1. MIRENA [Suspect]
     Active Substance: LEVONORGESTREL
     Dosage: 20 ?G PER DAY, CONTINUOUSLY
     Route: 015
     Dates: start: 2018

REACTIONS (2)
  - Immunodeficiency [None]
  - Vulvovaginal candidiasis [Not Recovered/Not Resolved]

NARRATIVE: CASE EVENT DATE: 2020
